FAERS Safety Report 10671509 (Version 2)
Quarter: 2014Q4

REPORT INFORMATION
  Report Type: Spontaneous
  Country: US (occurrence: US)
  Receive Date: 20141223
  Receipt Date: 20141223
  Transmission Date: 20150529
  Serious: No
  Sender: FDA-Public Use
  Company Number: US-009507513-1205USA01831

PATIENT
  Sex: Male

DRUGS (1)
  1. PROPECIA [Suspect]
     Active Substance: FINASTERIDE
     Indication: ALOPECIA
     Dosage: 1 MG, UNK
     Route: 048
     Dates: start: 1998, end: 2002

REACTIONS (9)
  - Blood testosterone decreased [Unknown]
  - Libido decreased [Unknown]
  - Anxiety [Not Recovered/Not Resolved]
  - Sexual dysfunction [Unknown]
  - Infertility male [Unknown]
  - Cognitive disorder [Unknown]
  - Marital problem [Not Recovered/Not Resolved]
  - Erectile dysfunction [Unknown]
  - Depression [Not Recovered/Not Resolved]

NARRATIVE: CASE EVENT DATE: 2001
